FAERS Safety Report 23333673 (Version 1)
Quarter: 2023Q4

REPORT INFORMATION
  Report Type: Spontaneous
  Country: US (occurrence: US)
  Receive Date: 20231223
  Receipt Date: 20231223
  Transmission Date: 20240110
  Serious: No
  Sender: FDA-Public Use
  Company Number: US-BRISTOL-MYERS SQUIBB COMPANY-2023-186193

PATIENT
  Age: 58 Year
  Sex: Male

DRUGS (1)
  1. LENALIDOMIDE [Suspect]
     Active Substance: LENALIDOMIDE
     Indication: Asthma
     Dosage: TAKE 1 WHOLE CAPSULE BY MOUTH W/ WATER EVERY MORNING ON DAYS 1-21 THEN 7 DAYS OFF
     Route: 048
     Dates: start: 20221028

REACTIONS (1)
  - Off label use [Unknown]
